FAERS Safety Report 16765570 (Version 2)
Quarter: 2023Q1

REPORT INFORMATION
  Report Type: Spontaneous
  Country: IT (occurrence: IT)
  Receive Date: 20190903
  Receipt Date: 20230102
  Transmission Date: 20230418
  Serious: Yes (Other)
  Sender: FDA-Public Use
  Company Number: IT-ACCORD-153501

PATIENT
  Age: 12 Month
  Sex: Male

DRUGS (5)
  1. CARBOPLATIN [Suspect]
     Active Substance: CARBOPLATIN
     Indication: Retinoblastoma
     Dosage: 3-9 INFUSIONS EVERY 3 WEEKS, 1 INJECTION 1 WEEK AFTER IA, INTRAVITREAL
     Route: 013
  2. TOPOTECAN [Suspect]
     Active Substance: TOPOTECAN HYDROCHLORIDE
     Indication: Retinoblastoma
     Dosage: 0.3 - 2 MG, 3-9 INFUSIONS EVERY 3 WEEKS
     Route: 013
  3. MELPHALAN [Suspect]
     Active Substance: MELPHALAN
     Indication: Retinoblastoma
     Dosage: 2.5 - 5 MG, 3-9 INFUSIONS EVERY 3 WEEKS
     Route: 013
  4. MELPHALAN [Suspect]
     Active Substance: MELPHALAN
     Indication: Retinoblastoma
     Dosage: 10-30 UG, 1 INJECTION 1 WEEK AFTER IA, INTRAVITREAL
  5. CARBOPLATIN [Suspect]
     Active Substance: CARBOPLATIN
     Indication: Retinoblastoma
     Dosage: 1 INJECTION 1 WEEK AFTER IA, INTRAVITREAL

REACTIONS (2)
  - Off label use [Unknown]
  - Retinal degeneration [Unknown]
